FAERS Safety Report 9338848 (Version 1)
Quarter: 2013Q2

REPORT INFORMATION
  Report Type: Spontaneous
  Country: US (occurrence: None)
  Receive Date: 20130606
  Receipt Date: 20130606
  Transmission Date: 20140414
  Serious: Yes (Hospitalization)
  Sender: FDA-Public Use
  Company Number: None

PATIENT
  Age: 70 Year
  Sex: Male
  Weight: 65.77 kg

DRUGS (1)
  1. PRIVIGEN [Suspect]
     Indication: MYASTHENIA GRAVIS
     Route: 041
     Dates: start: 20130522, end: 20130522

REACTIONS (3)
  - Meningitis aseptic [None]
  - Mental status changes [None]
  - Blood glucose decreased [None]
